FAERS Safety Report 4814394-6 (Version None)
Quarter: 2005Q4

REPORT INFORMATION
  Report Type: 
  Country: None (occurrence: None)
  Receive Date: 20051028
  Receipt Date: 20050818
  Transmission Date: 20060501
  Serious: No
  Sender: FDA-Public Use
  Company Number: US-GLAXOSMITHKLINE-A0570839A

PATIENT
  Age: 65 Year
  Sex: Male

DRUGS (5)
  1. ADVAIR DISKUS 100/50 [Suspect]
     Indication: ASTHMA
     Dosage: 1PUFF TWICE PER DAY
     Route: 055
     Dates: start: 20010101
  2. POTASSIUM [Concomitant]
  3. DEMADEX [Concomitant]
  4. AVANDIA [Concomitant]
  5. DIURETIC [Concomitant]

REACTIONS (1)
  - RASH [None]
